FAERS Safety Report 17851273 (Version 1)
Quarter: 2020Q2

REPORT INFORMATION
  Report Type: Spontaneous
  Country: VN (occurrence: VN)
  Receive Date: 20200602
  Receipt Date: 20200602
  Transmission Date: 20200714
  Serious: Yes (Hospitalization)
  Sender: FDA-Public Use
  Company Number: NVSC2020VN149601

PATIENT
  Age: 58 Year
  Sex: Male
  Weight: 70 kg

DRUGS (9)
  1. FRAIZERON [Suspect]
     Active Substance: SECUKINUMAB
     Dosage: 300 MG, QW  (3RD INJECTION)
     Route: 058
     Dates: start: 20200527
  2. FEXOFENADINE [Concomitant]
     Active Substance: FEXOFENADINE HYDROCHLORIDE
     Indication: PSORIASIS
     Dosage: 180 MG, UNKNOWN
     Route: 048
     Dates: start: 20200511
  3. FRAIZERON [Suspect]
     Active Substance: SECUKINUMAB
     Indication: PSORIATIC ARTHROPATHY
     Dosage: 300 MG, QW (1ST INJECTION)
     Route: 058
     Dates: start: 20200513
  4. LOSARTAN. [Concomitant]
     Active Substance: LOSARTAN
     Indication: HYPERTENSION
     Dosage: 50 MG, UNKNOWN
     Route: 048
     Dates: start: 2015
  5. BISOPROLOL [Concomitant]
     Active Substance: BISOPROLOL
     Indication: HYPERTENSION
     Dosage: 2.5 MG, UNKNOWN
     Route: 048
     Dates: start: 2015
  6. VITAMIN A [Concomitant]
     Active Substance: VITAMIN A
     Indication: PSORIASIS
     Dosage: 5000 IU, UNKNOWN
     Route: 048
     Dates: start: 20200101, end: 20200528
  7. FRAIZERON [Suspect]
     Active Substance: SECUKINUMAB
     Dosage: 300 MG, QW  (2ND INJECTION)
     Route: 058
     Dates: start: 20200520
  8. AMLODIPIN [Concomitant]
     Active Substance: AMLODIPINE BESYLATE
     Indication: HYPERTENSION
     Dosage: 5 MG, UNKNOWN
     Route: 048
     Dates: start: 2015
  9. VITAMIN E [Concomitant]
     Active Substance: .ALPHA.-TOCOPHEROL
     Indication: PSORIASIS
     Dosage: 400 OT, UNKNOWN
     Route: 048
     Dates: start: 20200101, end: 20200528

REACTIONS (4)
  - Erythema [Not Recovered/Not Resolved]
  - Fatigue [Not Recovered/Not Resolved]
  - Oedema [Not Recovered/Not Resolved]
  - Oedema peripheral [Not Recovered/Not Resolved]

NARRATIVE: CASE EVENT DATE: 20200520
